FAERS Safety Report 16808389 (Version 1)
Quarter: 2019Q3

REPORT INFORMATION
  Report Type: Spontaneous
  Country: FR (occurrence: FR)
  Receive Date: 20190916
  Receipt Date: 20190916
  Transmission Date: 20191005
  Serious: Yes (Other)
  Sender: FDA-Public Use
  Company Number: FR-ROCHE-2401766

PATIENT
  Age: 66 Year
  Sex: Male
  Weight: 45.3 kg

DRUGS (15)
  1. LOVENOX [Concomitant]
     Active Substance: ENOXAPARIN SODIUM
  2. PREGABALINE [Concomitant]
     Active Substance: PREGABALIN
  3. ZARZIO [Suspect]
     Active Substance: FILGRASTIM
     Route: 065
     Dates: start: 20190801, end: 20190803
  4. IMOVANE [Concomitant]
     Active Substance: ZOPICLONE
  5. ZARZIO [Suspect]
     Active Substance: FILGRASTIM
     Indication: PRODUCT USED FOR UNKNOWN INDICATION
     Route: 065
     Dates: start: 20190621, end: 20190623
  6. LANSOPRAZOLE. [Suspect]
     Active Substance: LANSOPRAZOLE
     Indication: PRODUCT USED FOR UNKNOWN INDICATION
     Route: 065
  7. CELLCEPT [Suspect]
     Active Substance: MYCOPHENOLATE MOFETIL\MYCOPHENOLATE MOFETIL HYDROCHLORIDE
     Indication: PRODUCT USED FOR UNKNOWN INDICATION
     Route: 065
  8. CORDARONE [Concomitant]
     Active Substance: AMIODARONE HYDROCHLORIDE
  9. SKENAN [Concomitant]
     Active Substance: MORPHINE SULFATE
  10. CYMEVAN [Suspect]
     Active Substance: GANCICLOVIR
     Indication: CYTOMEGALOVIRUS INFECTION
     Dosage: LYOPHILISAT POUR USAGE PARENTERAL (PERFUSION),
     Route: 041
     Dates: start: 20190503, end: 20190531
  11. ROVALCYTE [Suspect]
     Active Substance: VALGANCICLOVIR HYDROCHLORIDE
     Indication: CYTOMEGALOVIRUS INFECTION
     Dosage: ON 23/JUL/2019, HE HAD A REINTRODUCTION OF VALGANCICLOVIR HYDROCHLORIDE.
     Route: 048
     Dates: start: 20190531, end: 20190619
  12. NEORAL [Concomitant]
     Active Substance: CYCLOSPORINE
  13. BACTRIM [Suspect]
     Active Substance: SULFAMETHOXAZOLE\TRIMETHOPRIM
     Indication: PRODUCT USED FOR UNKNOWN INDICATION
     Route: 065
  14. SOLUPRED [PREDNISOLONE METASULFOBENZOATE SODIUM] [Concomitant]
     Active Substance: PREDNISOLONE SODIUM METAZOATE
  15. AMBISOME [AMPHOTERICIN B, LIPOSOME] [Concomitant]

REACTIONS (4)
  - Neutropenia [Recovered/Resolved]
  - Bone marrow failure [Unknown]
  - Leukopenia [Unknown]
  - Pancytopenia [Unknown]

NARRATIVE: CASE EVENT DATE: 20190523
